FAERS Safety Report 5905308-6 (Version None)
Quarter: 2008Q4

REPORT INFORMATION
  Report Type: 
  Country: None (occurrence: None)
  Receive Date: 20081001
  Receipt Date: 20080919
  Transmission Date: 20090506
  Serious: No
  Sender: FDA-Public Use
  Company Number: US-B.I. PHARMACEUTICALS,INC./RIDGEFIELD-2008-BP-12699BP

PATIENT
  Sex: Male

DRUGS (3)
  1. SPIRIVA [Suspect]
     Indication: CHEST PAIN
     Dosage: 18MCG
     Route: 055
     Dates: start: 20080601
  2. DIOVAN [Concomitant]
     Indication: HYPERTENSION
     Dosage: 320MG
     Route: 048
     Dates: start: 20080601
  3. PRILOSEC [Concomitant]
     Indication: CHEST PAIN
     Dosage: 20MG
     Route: 048
     Dates: start: 20080601

REACTIONS (3)
  - DRUG INEFFECTIVE [None]
  - DYSPNOEA [None]
  - SPUTUM DISCOLOURED [None]
